FAERS Safety Report 5749341-6 (Version None)
Quarter: 2008Q2

REPORT INFORMATION
  Report Type: 
  Country: None (occurrence: None)
  Receive Date: 20080527
  Receipt Date: 20080513
  Transmission Date: 20081010
  Serious: Yes (Hospitalization, Other)
  Sender: FDA-Public Use
  Company Number: US-AVENTIS-200811152US

PATIENT
  Sex: Male
  Weight: 72.7 kg

DRUGS (9)
  1. AMARYL [Suspect]
     Indication: DIABETES MELLITUS
     Dosage: DOSE: UNK
     Dates: start: 20050209, end: 20080116
  2. AMARYL [Suspect]
     Dosage: DOSE: 1/2
     Dates: start: 20050301
  3. ACTOS [Suspect]
     Dosage: DOSE: UNK
     Dates: start: 20061025, end: 20080116
  4. ACTOS [Suspect]
     Dosage: DOSE: UNK
     Dates: start: 20080207
  5. ACTOS [Suspect]
     Dates: start: 20050901
  6. DIGITEK [Concomitant]
     Indication: ARRHYTHMIA
     Dosage: DOSE: 1/2
     Dates: start: 20050301
  7. CLONIDINE [Concomitant]
     Dates: start: 20050301
  8. LISINOPRIL [Concomitant]
     Dates: start: 20050301
  9. PRAVACHOL [Concomitant]
     Dates: start: 20050301

REACTIONS (6)
  - COLITIS [None]
  - HYPOGLYCAEMIC COMA [None]
  - HYPOKALAEMIA [None]
  - NAUSEA [None]
  - VOMITING [None]
  - WHITE BLOOD CELL COUNT INCREASED [None]
